FAERS Safety Report 12845659 (Version 7)
Quarter: 2019Q2

REPORT INFORMATION
  Report Type: Spontaneous
  Country: US (occurrence: US)
  Receive Date: 20161013
  Receipt Date: 20190627
  Transmission Date: 20190711
  Serious: Yes (Hospitalization)
  Sender: FDA-Public Use
  Company Number: US-ACTELION-A-US2016-133905

PATIENT
  Age: 33 Year
  Sex: Female
  Weight: 110.2 kg

DRUGS (3)
  1. ADCIRCA [Suspect]
     Active Substance: TADALAFIL
     Indication: PRODUCT USED FOR UNKNOWN INDICATION
     Route: 065
  2. OPSUMIT [Suspect]
     Active Substance: MACITENTAN
     Indication: PULMONARY HYPERTENSION
     Dosage: 10 MG, QD
     Route: 048
     Dates: start: 20151124
  3. REVATIO [Concomitant]
     Active Substance: SILDENAFIL CITRATE

REACTIONS (18)
  - Rash pruritic [Recovering/Resolving]
  - Erythema [Recovered/Resolved]
  - Facial pain [Unknown]
  - Photophobia [Unknown]
  - Oxygen saturation decreased [Unknown]
  - Swelling face [Recovered/Resolved]
  - Seasonal allergy [Unknown]
  - Skin ulcer [Unknown]
  - Sleep apnoea syndrome [Unknown]
  - Loss of consciousness [Unknown]
  - Hypersensitivity [Unknown]
  - Sinus pain [Unknown]
  - Ear pain [Unknown]
  - Sinus tachycardia [Unknown]
  - Pneumonia aspiration [Unknown]
  - Heart rate increased [Unknown]
  - Sinusitis [Unknown]
  - Dyspnoea [Unknown]

NARRATIVE: CASE EVENT DATE: 201601
